FAERS Safety Report 25864128 (Version 1)
Quarter: 2025Q3

REPORT INFORMATION
  Report Type: Spontaneous
  Country: JP (occurrence: JP)
  Receive Date: 20250930
  Receipt Date: 20250930
  Transmission Date: 20251021
  Serious: Yes (Death)
  Sender: INSMED
  Company Number: JP-INSMED, INC.-2025-04087-JP

PATIENT
  Age: 69 Year

DRUGS (1)
  1. ARIKAYCE [Suspect]
     Active Substance: AMIKACIN
     Indication: Mycobacterium avium complex infection
     Route: 055

REACTIONS (1)
  - Death [Fatal]
